FAERS Safety Report 5922223-2 (Version None)
Quarter: 2008Q4

REPORT INFORMATION
  Report Type: 
  Country: None (occurrence: None)
  Receive Date: 20081017
  Receipt Date: 20081008
  Transmission Date: 20090506
  Serious: Yes (Other)
  Sender: FDA-Public Use
  Company Number: US-JNJCH-2008051592

PATIENT
  Sex: Female

DRUGS (1)
  1. CHILDREN'S BENADRYL-D ALLERGY + SINUS [Suspect]
     Indication: MALAISE
     Dosage: TEXT:UNSPECIFIED
     Route: 048

REACTIONS (3)
  - FATIGUE [None]
  - HYPERSENSITIVITY [None]
  - LOSS OF CONSCIOUSNESS [None]
